FAERS Safety Report 12216387 (Version 4)
Quarter: 2016Q2

REPORT INFORMATION
  Report Type: Report from Study
  Country: US (occurrence: US)
  Receive Date: 20160329
  Receipt Date: 20160623
  Transmission Date: 20160815
  Serious: Yes (Other)
  Sender: FDA-Public Use
  Company Number: US-GILEAD-2016-0193446

PATIENT
  Age: 70 Year
  Sex: Female
  Weight: 82.54 kg

DRUGS (10)
  1. AMBRISENTAN [Suspect]
     Active Substance: AMBRISENTAN
     Indication: PULMONARY HYPERTENSION
     Dosage: 10 MG, QD
     Route: 065
     Dates: start: 20100128
  2. AMBRISENTAN [Suspect]
     Active Substance: AMBRISENTAN
     Indication: INTERSTITIAL LUNG DISEASE
  3. SILDENAFIL. [Concomitant]
     Active Substance: SILDENAFIL
  4. CARDIZEM [Concomitant]
     Active Substance: DILTIAZEM HYDROCHLORIDE
  5. OXYGEN. [Concomitant]
     Active Substance: OXYGEN
  6. TORSEMIDE. [Concomitant]
     Active Substance: TORSEMIDE
  7. REVATIO [Concomitant]
     Active Substance: SILDENAFIL CITRATE
  8. AMBRISENTAN [Suspect]
     Active Substance: AMBRISENTAN
     Indication: SCLERODERMA
  9. ORENITRAM [Suspect]
     Active Substance: TREPROSTINIL
     Indication: PRODUCT USED FOR UNKNOWN INDICATION
     Dosage: 1 MG, BID
     Route: 065
  10. TREPROSTINIL [Concomitant]
     Active Substance: TREPROSTINIL

REACTIONS (13)
  - Disease progression [Not Recovered/Not Resolved]
  - Fall [Unknown]
  - Headache [Not Recovered/Not Resolved]
  - Weight increased [Recovered/Resolved]
  - Oxygen saturation decreased [Recovered/Resolved]
  - Dyspnoea exertional [Recovered/Resolved]
  - Balance disorder [Unknown]
  - Nausea [Not Recovered/Not Resolved]
  - Chest discomfort [Not Recovered/Not Resolved]
  - Fluid retention [Not Recovered/Not Resolved]
  - Malaise [Not Recovered/Not Resolved]
  - Heart rate increased [Recovered/Resolved]
  - Viral infection [Recovered/Resolved]

NARRATIVE: CASE EVENT DATE: 20151022
